FAERS Safety Report 5263412-2 (Version None)
Quarter: 2007Q1

REPORT INFORMATION
  Report Type: 
  Country: None (occurrence: None)
  Receive Date: 20070313
  Receipt Date: 20070305
  Transmission Date: 20070707
  Serious: Yes (Other)
  Sender: FDA-Public Use
  Company Number: 2007SE00816

PATIENT
  Sex: Male

DRUGS (2)
  1. SEROQUEL [Suspect]
     Dosage: 400 MG - 600 MG DAILY DURING PREGNANCY
     Route: 064
  2. SEROQUEL [Suspect]
     Dosage: 400 MG - 600 MG DAILY DURING PREGNANCY
     Route: 063

REACTIONS (1)
  - EXTRAPYRAMIDAL DISORDER [None]
